FAERS Safety Report 6764473-1 (Version None)
Quarter: 2010Q2

REPORT INFORMATION
  Report Type: 
  Country: None (occurrence: None)
  Receive Date: 20100609
  Receipt Date: 20100412
  Transmission Date: 20101027
  Serious: No
  Sender: FDA-Public Use
  Company Number: 2010008865

PATIENT
  Age: 12 Year
  Sex: Female
  Weight: 38.5557 kg

DRUGS (1)
  1. CHILDREN'S ZYRTEC ALLERGY [Suspect]
     Indication: HYPERSENSITIVITY
     Dosage: 1 TSP DAILY ORAL
     Route: 048
     Dates: start: 20100301

REACTIONS (2)
  - MOOD ALTERED [None]
  - PERSONALITY CHANGE [None]
